FAERS Safety Report 20176233 (Version 1)
Quarter: 2021Q4

REPORT INFORMATION
  Report Type: Spontaneous
  Country: US (occurrence: None)
  Receive Date: 20211210
  Receipt Date: 20211210
  Transmission Date: 20220303
  Serious: Yes (Other)
  Sender: FDA-Public Use
  Company Number: None

PATIENT
  Age: 60 Year
  Sex: Male

DRUGS (2)
  1. HUMIRA [Suspect]
     Active Substance: ADALIMUMAB
     Indication: Psoriasis
     Dates: start: 20211004, end: 20211103
  2. HUMIRA [Concomitant]
     Active Substance: ADALIMUMAB
     Dates: start: 20211004, end: 20211103

REACTIONS (7)
  - Abdominal pain [None]
  - Vomiting [None]
  - Jaundice [None]
  - Fatigue [None]
  - Cough [None]
  - Weight decreased [None]
  - Chest pain [None]

NARRATIVE: CASE EVENT DATE: 20211103
